FAERS Safety Report 6346222-4 (Version None)
Quarter: 2009Q3

REPORT INFORMATION
  Report Type: 
  Country: None (occurrence: None)
  Receive Date: 20090909
  Receipt Date: 20090901
  Transmission Date: 20100115
  Serious: Yes (Other)
  Sender: FDA-Public Use
  Company Number: PHHY2009GB37468

PATIENT
  Sex: Male

DRUGS (1)
  1. CLOZARIL [Suspect]
     Indication: SCHIZOPHRENIA
     Dosage: 50 MG/DAY
     Dates: start: 20090811, end: 20090831

REACTIONS (4)
  - ASTHMA [None]
  - CHEST PAIN [None]
  - PYREXIA [None]
  - TENSION HEADACHE [None]
